FAERS Safety Report 8149824-8 (Version None)
Quarter: 2012Q1

REPORT INFORMATION
  Report Type: 
  Country: None (occurrence: None)
  Receive Date: 20120218
  Receipt Date: 20111207
  Transmission Date: 20120608
  Serious: No
  Sender: FDA-Public Use
  Company Number: US-ALLERGAN-1116027US

PATIENT
  Sex: Female

DRUGS (1)
  1. BOTOX COSMETIC [Suspect]
     Indication: SKIN WRINKLING
     Dosage: UNK
     Route: 030
     Dates: start: 20111111, end: 20111111

REACTIONS (5)
  - NAUSEA [None]
  - NECK PAIN [None]
  - FATIGUE [None]
  - MUSCULAR WEAKNESS [None]
  - ASTHENIA [None]
